FAERS Safety Report 17584951 (Version 1)
Quarter: 2020Q1

REPORT INFORMATION
  Report Type: Spontaneous
  Country: US (occurrence: US)
  Receive Date: 20200325
  Receipt Date: 20200325
  Transmission Date: 20200409
  Serious: Yes (Other)
  Sender: FDA-Public Use
  Company Number: None

PATIENT
  Age: 65 Year
  Sex: Male
  Weight: 129.15 kg

DRUGS (10)
  1. ENTRESTO [Suspect]
     Active Substance: SACUBITRIL\VALSARTAN
     Indication: HEART RATE INCREASED
     Route: 048
     Dates: start: 20200318
  2. ENTRESTO [Suspect]
     Active Substance: SACUBITRIL\VALSARTAN
     Indication: HYPERTENSION
     Route: 048
     Dates: start: 20200318
  3. SYNTHROID [Concomitant]
     Active Substance: LEVOTHYROXINE SODIUM
  4. FISH OIL [Concomitant]
     Active Substance: FISH OIL
  5. XARELTO [Concomitant]
     Active Substance: RIVAROXABAN
  6. ENTRESTO [Suspect]
     Active Substance: SACUBITRIL\VALSARTAN
     Indication: ATRIAL FIBRILLATION
     Route: 048
     Dates: start: 20200318
  7. MULTIVITAMIN [Concomitant]
     Active Substance: VITAMINS
  8. PROZAC [Concomitant]
     Active Substance: FLUOXETINE HYDROCHLORIDE
  9. CARDIZEM [Concomitant]
     Active Substance: DILTIAZEM HYDROCHLORIDE
  10. GARLIC. [Concomitant]
     Active Substance: GARLIC

REACTIONS (4)
  - Irritability [None]
  - Agitation [None]
  - Anger [None]
  - Personality change [None]

NARRATIVE: CASE EVENT DATE: 20200325
